FAERS Safety Report 16622416 (Version 8)
Quarter: 2021Q1

REPORT INFORMATION
  Report Type: Other
  Country: GB (occurrence: GB)
  Receive Date: 20190724
  Receipt Date: 20210327
  Transmission Date: 20210419
  Serious: Yes (Death, Hospitalization, Disabling, Other)
  Sender: FDA-Public Use
  Company Number: GB-CELLTRION INC.-2019GB022769

PATIENT

DRUGS (63)
  1. DOCETAXEL. [Suspect]
     Active Substance: DOCETAXEL
     Dosage: 108 MG, Q3W (EVERY 3 WEEKS)
     Route: 042
     Dates: start: 20150925, end: 20151127
  2. BUDESONIDE. [Concomitant]
     Active Substance: BUDESONIDE
     Indication: PRODUCT USED FOR UNKNOWN INDICATION
     Dosage: 9 MG
     Route: 048
     Dates: start: 20181101, end: 20181129
  3. GLYCEROL [Concomitant]
     Active Substance: GLYCERIN
     Indication: CONSTIPATION
     Dosage: 4 G
     Route: 065
     Dates: start: 20190513, end: 20190629
  4. ONDANSETRON [Concomitant]
     Active Substance: ONDANSETRON
     Indication: PRODUCT USED FOR UNKNOWN INDICATION
     Dosage: 8 MG
     Route: 048
     Dates: start: 20190522, end: 20190610
  5. PARACETAMOL [Concomitant]
     Active Substance: ACETAMINOPHEN
     Indication: PRODUCT USED FOR UNKNOWN INDICATION
     Dosage: 1 G PER 0.25 DAY
     Route: 048
     Dates: start: 20151006, end: 20151008
  6. VERAPAMIL [Concomitant]
     Active Substance: VERAPAMIL HYDROCHLORIDE
     Indication: VENTRICULAR EXTRASYSTOLES
     Dosage: UNK
     Route: 048
     Dates: start: 20160906, end: 20190703
  7. ZOLEDRONIC ACID [Concomitant]
     Active Substance: ZOLEDRONIC ACID
     Indication: PRODUCT USED FOR UNKNOWN INDICATION
     Dosage: 4 MG, MONTHLY
     Route: 042
     Dates: start: 20151027, end: 20190703
  8. ZOLEDRONIC ACID [Concomitant]
     Active Substance: ZOLEDRONIC ACID
     Dosage: 4 MG, QMO
     Route: 042
     Dates: start: 20151030
  9. FLUCLOXACILLIN [Concomitant]
     Active Substance: FLUCLOXACILLIN
     Indication: PNEUMONIA
  10. TRASTUZUMAB. [Suspect]
     Active Substance: TRASTUZUMAB
     Indication: BREAST CANCER METASTATIC
     Dosage: 600 MG, WEVERY 3 WEEKS
     Route: 058
     Dates: start: 20190522, end: 20190529
  11. ERIBULIN MESYLATE [Suspect]
     Active Substance: ERIBULIN MESYLATE
     Indication: BREAST CANCER METASTATIC
     Dosage: 2.5 MG, Q3W (EVERY 3 WEEKS)
     Route: 042
     Dates: start: 20190222, end: 20190412
  12. CALCICHEW D3 FORTE [Concomitant]
     Active Substance: CALCIUM\CHOLECALCIFEROL
     Dosage: UNK, PER 0.5 DAY
     Route: 048
     Dates: start: 20150720, end: 20190703
  13. DEXAMETHASONE. [Concomitant]
     Active Substance: DEXAMETHASONE
     Dosage: 4 MG, QD
     Route: 048
     Dates: start: 20190303, end: 20190303
  14. ZOPICLONE [Concomitant]
     Active Substance: ZOPICLONE
     Dosage: UNK
  15. TRASTUZUMAB (UNKNOWN) [Suspect]
     Active Substance: TRASTUZUMAB
     Indication: BREAST CANCER METASTATIC
     Dosage: LOADING DOSE 8 MG/KG
     Route: 042
     Dates: start: 20150721, end: 20150721
  16. NERATINIB [Suspect]
     Active Substance: NERATINIB
     Indication: BREAST CANCER METASTATIC
     Dosage: 240 MG DAILY
     Route: 048
     Dates: start: 20181101, end: 20190109
  17. CYCLIZINE HYDROCHLORIDE [Concomitant]
     Active Substance: CYCLIZINE HYDROCHLORIDE
     Dosage: 50 MG, PER 0.33 DAY
     Route: 048
     Dates: start: 20181121, end: 20190703
  18. LOPERAMIDE [Concomitant]
     Active Substance: LOPERAMIDE
     Indication: PRODUCT USED FOR UNKNOWN INDICATION
     Dosage: 2 MG
     Route: 048
     Dates: start: 20181101, end: 20190703
  19. TRIMETHOPRIM. [Concomitant]
     Active Substance: TRIMETHOPRIM
     Indication: PRODUCT USED FOR UNKNOWN INDICATION
     Dosage: 400 MG, QD
     Route: 048
     Dates: start: 20151014, end: 20151202
  20. FLUCLOXACILLIN [Concomitant]
     Active Substance: FLUCLOXACILLIN
     Indication: PSEUDOMONAS INFECTION
     Dosage: UNK
     Dates: start: 20190627, end: 20190703
  21. GENTAMICIN. [Concomitant]
     Active Substance: GENTAMICIN
     Dosage: UNK
     Route: 042
     Dates: start: 20190627, end: 20190701
  22. BISOPROLOL [Concomitant]
     Active Substance: BISOPROLOL
     Indication: PRODUCT USED FOR UNKNOWN INDICATION
     Dosage: 1.25 MG, DAILY
     Route: 048
     Dates: start: 20160826, end: 20160906
  23. CYCLIZINE HYDROCHLORIDE [Concomitant]
     Active Substance: CYCLIZINE HYDROCHLORIDE
     Indication: NAUSEA
     Dosage: 150 MG, QD
     Route: 048
     Dates: start: 20181121
  24. DEXAMETHASONE. [Concomitant]
     Active Substance: DEXAMETHASONE
     Dosage: 8 MG, QD
     Route: 048
     Dates: start: 20190302
  25. FILGRASTIM [Concomitant]
     Active Substance: FILGRASTIM
     Dosage: 300 UG, DAILY
     Route: 058
     Dates: start: 20151120, end: 20151126
  26. HALOPERIDOL. [Concomitant]
     Active Substance: HALOPERIDOL
     Indication: PRODUCT USED FOR UNKNOWN INDICATION
     Dosage: 1.5 MG
     Route: 065
     Dates: start: 20190702, end: 20190703
  27. MIDAZOLAM. [Concomitant]
     Active Substance: MIDAZOLAM
     Indication: INSOMNIA
     Dosage: 1.25 MG
     Route: 058
     Dates: start: 20190702, end: 20190703
  28. TRIMETHOPRIM. [Concomitant]
     Active Substance: TRIMETHOPRIM
     Dosage: 200 MG PER 0.5 DAY
     Route: 048
     Dates: start: 20151014, end: 20151202
  29. CAPECITABINE. [Suspect]
     Active Substance: CAPECITABINE
     Dosage: UNK
  30. DOCETAXEL. [Suspect]
     Active Substance: DOCETAXEL
     Dosage: 86 MG PER 3 86 MG, Q3W (EVERY 3 WEEKS)
     Route: 042
     Dates: start: 20150814, end: 20150904
  31. VINORELBINE [Suspect]
     Active Substance: VINORELBINE TARTRATE
     Dosage: 110 MG
     Route: 048
     Dates: start: 20190522, end: 20190529
  32. DOMPERIDONE [Concomitant]
     Active Substance: DOMPERIDONE
     Indication: PRODUCT USED FOR UNKNOWN INDICATION
     Dosage: TID FOR 3 DAYS AFTER DAY 1 AND 8 OF CHEM
     Route: 048
     Dates: start: 20190216, end: 20190610
  33. MACROGOL [Concomitant]
     Active Substance: POLYETHYLENE GLYCOLS
     Indication: CONSTIPATION
     Dosage: UNK UNK, QD (0.33)/ PER 0.33 DAY
     Route: 048
     Dates: start: 20190513, end: 20190629
  34. PROCHLORPERAZINE. [Concomitant]
     Active Substance: PROCHLORPERAZINE
     Indication: PRODUCT USED FOR UNKNOWN INDICATION
     Dosage: 5 MG PER 0.33 DAY
     Route: 048
     Dates: start: 20160106, end: 20160113
  35. VITAMIN C [Concomitant]
     Active Substance: ASCORBIC ACID
     Indication: PRODUCT USED FOR UNKNOWN INDICATION
     Dosage: UNK, DAILY
     Route: 048
     Dates: start: 20171213, end: 20190703
  36. PERTUZUMAB. [Suspect]
     Active Substance: PERTUZUMAB
     Dosage: 420 MG, EVERY 3 WEEKS MAINTAINANCE DOSE/420 MG, TIW
     Route: 042
     Dates: start: 20150814, end: 20180511
  37. AMITRIPTYLINE HYDROCHLORIDE. [Concomitant]
     Active Substance: AMITRIPTYLINE HYDROCHLORIDE
     Indication: PRODUCT USED FOR UNKNOWN INDICATION
     Dosage: 10 MG
     Route: 048
     Dates: start: 20190213, end: 20190703
  38. CALCICHEW D3 FORTE [Concomitant]
     Active Substance: CALCIUM\CHOLECALCIFEROL
     Indication: PRODUCT USED FOR UNKNOWN INDICATION
     Dosage: 2 OT, QD
     Route: 048
     Dates: start: 20150720
  39. E45 [Concomitant]
     Active Substance: LANOLIN\LIGHT MINERAL OIL\PARAFFIN
     Indication: PRODUCT USED FOR UNKNOWN INDICATION
     Dosage: 30 G
     Route: 061
     Dates: start: 20151116
  40. FILGRASTIM [Concomitant]
     Active Substance: FILGRASTIM
     Indication: PRODUCT USED FOR UNKNOWN INDICATION
     Dosage: 300 UG, DAILY
     Route: 058
     Dates: start: 20151005, end: 20151008
  41. GENTAMICIN. [Concomitant]
     Active Substance: GENTAMICIN
     Indication: PNEUMONIA
     Dosage: 345 MG, DAILY
     Route: 042
     Dates: start: 20151005, end: 20151008
  42. TRASTUZUMAB EMTANSINE [Suspect]
     Active Substance: ADO-TRASTUZUMAB EMTANSINE
     Indication: BREAST CANCER METASTATIC
     Dosage: 240 MG, Q3W (EVERY 3 WEEKS)
     Route: 042
     Dates: start: 20180625, end: 20180928
  43. TRASTUZUMAB EMTANSINE [Suspect]
     Active Substance: ADO-TRASTUZUMAB EMTANSINE
     Dosage: UNK
  44. TRASTUZUMAB RECOMBINANT [Suspect]
     Active Substance: TRASTUZUMAB
     Indication: HER2 POSITIVE BREAST CANCER
     Dosage: 600 MG, Q3W
     Route: 058
     Dates: start: 20190522, end: 20190529
  45. CAPECITABINE. [Suspect]
     Active Substance: CAPECITABINE
     Indication: BREAST CANCER METASTATIC
     Dosage: 500 MG
     Route: 048
     Dates: start: 20181031, end: 20190130
  46. NERATINIB [Suspect]
     Active Substance: NERATINIB
     Dosage: UNK
  47. VINORELBINE [Suspect]
     Active Substance: VINORELBINE TARTRATE
     Indication: BREAST CANCER METASTATIC
     Dosage: 110 MG
     Route: 048
     Dates: start: 20190522, end: 20200529
  48. DEXAMETHASONE. [Concomitant]
     Active Substance: DEXAMETHASONE
     Indication: PRODUCT USED FOR UNKNOWN INDICATION
     Dosage: 12 MG, QD
     Route: 048
     Dates: start: 20190301, end: 20190301
  49. NYSTATIN. [Concomitant]
     Active Substance: NYSTATIN
     Indication: ORAL CANDIDIASIS
     Dosage: UNK PER 0.25 DAY
     Route: 048
     Dates: start: 20190614, end: 20190629
  50. TRASTUZUMAB (UNKNOWN) [Suspect]
     Active Substance: TRASTUZUMAB
     Dosage: 400 MG EVERY 3 WEEKS, MAINTAINANCE DOSE 6 MG/KG)/ 400 MG, TIW (MAINTAINANCE DOSE6 MG/KG)FORMULATION:
     Route: 042
     Dates: start: 20150814, end: 20180511
  51. DOCETAXEL. [Suspect]
     Active Substance: DOCETAXEL
     Indication: BREAST CANCER METASTATIC
     Dosage: 108 MG, Q3W (EVERY 3 WEEKS)
     Route: 042
     Dates: start: 20150722
  52. PERTUZUMAB. [Suspect]
     Active Substance: PERTUZUMAB
     Indication: BREAST CANCER METASTATIC
     Dosage: 840 MG, LOADING DOSE
     Route: 042
     Dates: start: 20150721, end: 20150721
  53. CO?AMOXICLAV [AMOXICILLIN;CLAVULANATE POTASSIUM] [Concomitant]
     Active Substance: AMOXICILLIN\CLAVULANATE POTASSIUM
     Indication: PRODUCT USED FOR UNKNOWN INDICATION
     Dosage: 1 DF PER 0.33 DAY
     Route: 048
     Dates: start: 20190513, end: 20190520
  54. COD LIVER OIL [Concomitant]
     Active Substance: COD LIVER OIL
     Indication: PRODUCT USED FOR UNKNOWN INDICATION
     Dosage: UNK
     Route: 048
     Dates: start: 20171213, end: 20190703
  55. FILGRASTIM [Concomitant]
     Active Substance: FILGRASTIM
     Dosage: 300 UG, DAILY
     Route: 058
     Dates: start: 20151025, end: 20151031
  56. GLUCOSAMINE [Concomitant]
     Active Substance: GLUCOSAMINE
     Indication: PRODUCT USED FOR UNKNOWN INDICATION
     Dosage: UNK, DAILY
     Route: 048
     Dates: start: 20171213, end: 20190703
  57. LORAZEPAM. [Concomitant]
     Active Substance: LORAZEPAM
     Indication: ANXIETY
     Dosage: 1 MG
     Route: 048
     Dates: start: 20190611, end: 20190703
  58. METRONIDAZOLE. [Concomitant]
     Active Substance: METRONIDAZOLE
     Indication: PRODUCT USED FOR UNKNOWN INDICATION
     Dosage: 1200 MG, QD
     Route: 048
     Dates: start: 20151005
  59. METRONIDAZOLE. [Concomitant]
     Active Substance: METRONIDAZOLE
     Dosage: 0.75 % PER 0.33 DAY
     Route: 061
     Dates: start: 20190508, end: 20190529
  60. METRONIDAZOLE. [Concomitant]
     Active Substance: METRONIDAZOLE
     Dosage: 400 MG PER 0.33 DAY
     Route: 048
     Dates: start: 20151005
  61. PARACETAMOL [Concomitant]
     Active Substance: ACETAMINOPHEN
     Dosage: 4 G, QD
     Route: 048
     Dates: start: 20151006, end: 20151008
  62. TAZOCIN [Concomitant]
     Active Substance: PIPERACILLIN SODIUM\TAZOBACTAM SODIUM
     Indication: PRODUCT USED FOR UNKNOWN INDICATION
     Dosage: 18 G, QD
     Route: 042
     Dates: start: 20151005, end: 20151008
  63. ZOPICLONE [Concomitant]
     Active Substance: ZOPICLONE
     Indication: INSOMNIA
     Dosage: 3.75 MG
     Route: 048
     Dates: start: 20190521, end: 20190603

REACTIONS (10)
  - Pleural effusion [Fatal]
  - Breast pain [Recovered/Resolved]
  - Breast pain [Not Recovered/Not Resolved]
  - Pneumonia [Fatal]
  - Pneumothorax [Recovering/Resolving]
  - Cough [Not Recovered/Not Resolved]
  - Musculoskeletal chest pain [Not Recovered/Not Resolved]
  - Ureteric obstruction [Recovered/Resolved]
  - Pseudomonas infection [Not Recovered/Not Resolved]
  - Breast pain [Fatal]

NARRATIVE: CASE EVENT DATE: 20160316
